FAERS Safety Report 24531547 (Version 1)
Quarter: 2024Q4

REPORT INFORMATION
  Report Type: Report from Study
  Country: US (occurrence: US)
  Receive Date: 20241022
  Receipt Date: 20241022
  Transmission Date: 20250115
  Serious: No
  Sender: ROCHE
  Company Number: US-ROCHE-3469724

PATIENT
  Age: 50 Year
  Sex: Female

DRUGS (8)
  1. PULMOZYME [Suspect]
     Active Substance: DORNASE ALFA
     Indication: Cystic fibrosis lung
     Route: 065
  2. PULMOZYME [Suspect]
     Active Substance: DORNASE ALFA
     Dosage: INHALE 2.5MG INTO THE LUNGS DAILY
     Route: 065
     Dates: start: 20230310
  3. TRIKAFTA [Concomitant]
     Active Substance: ELEXACAFTOR\IVACAFTOR\TEZACAFTOR
  4. FLONASE [Concomitant]
     Active Substance: FLUTICASONE PROPIONATE
  5. LACTULOSE [Concomitant]
     Active Substance: LACTULOSE
  6. XOPENEX [Concomitant]
     Active Substance: LEVALBUTEROL HYDROCHLORIDE
  7. CREON [Concomitant]
     Active Substance: PANCRELIPASE AMYLASE\PANCRELIPASE LIPASE\PANCRELIPASE PROTEASE
  8. ZOSYN [Concomitant]
     Active Substance: PIPERACILLIN SODIUM\TAZOBACTAM SODIUM

REACTIONS (2)
  - Off label use [Unknown]
  - No adverse event [Unknown]
